FAERS Safety Report 11631913 (Version 3)
Quarter: 2015Q4

REPORT INFORMATION
  Report Type: Report from Study
  Country: US (occurrence: US)
  Receive Date: 20151015
  Receipt Date: 20151125
  Transmission Date: 20160304
  Serious: Yes (Hospitalization, Other)
  Sender: FDA-Public Use
  Company Number: US-GILEAD-2015-0176928

PATIENT
  Age: 52 Year
  Sex: Male

DRUGS (3)
  1. AMBRISENTAN [Suspect]
     Active Substance: AMBRISENTAN
     Indication: PRODUCT USED FOR UNKNOWN INDICATION
     Dosage: 10 MG, QD
     Route: 065
     Dates: start: 20130325
  2. LEVOPHED [Concomitant]
     Active Substance: NOREPINEPHRINE BITARTRATE
  3. REMODULIN [Concomitant]
     Active Substance: TREPROSTINIL

REACTIONS (8)
  - Infusion site pain [Unknown]
  - Infusion site extravasation [Not Recovered/Not Resolved]
  - Infusion site swelling [Unknown]
  - Infusion site erythema [Unknown]
  - Central venous catheterisation [Unknown]
  - Pyrexia [Unknown]
  - Diarrhoea [Unknown]
  - Hypotension [Unknown]
